FAERS Safety Report 9154250 (Version 1)
Quarter: 2013Q1

REPORT INFORMATION
  Report Type: Spontaneous
  Country: US (occurrence: None)
  Receive Date: 20130306
  Receipt Date: 20130306
  Transmission Date: 20140127
  Serious: No
  Sender: FDA-Public Use
  Company Number: None

PATIENT
  Age: 83 Year
  Sex: Female
  Weight: 81.65 kg

DRUGS (1)
  1. CLINDAMYCIN [Suspect]
     Indication: PAROTID GLAND INFLAMMATION
     Route: 049
     Dates: start: 20130217, end: 20130227

REACTIONS (3)
  - Rash [None]
  - Pruritus [None]
  - Thermal burn [None]
